FAERS Safety Report 5699574-2 (Version None)
Quarter: 2008Q2

REPORT INFORMATION
  Report Type: 
  Country: None (occurrence: None)
  Receive Date: 20080410
  Receipt Date: 20080329
  Transmission Date: 20081010
  Serious: Yes (Other)
  Sender: FDA-Public Use
  Company Number: BE-TEVA-169530ISR

PATIENT
  Age: 60 Year
  Sex: Female

DRUGS (2)
  1. COPAXONE [Suspect]
     Indication: MULTIPLE SCLEROSIS
     Route: 058
     Dates: start: 20070715, end: 20080101
  2. CORTISONE [Concomitant]
     Dosage: DURING 5 DAYS ON JUL/SEP 2007

REACTIONS (1)
  - HEPATITIS TOXIC [None]
